FAERS Safety Report 6170589-3 (Version None)
Quarter: 2009Q2

REPORT INFORMATION
  Report Type: 
  Country: None (occurrence: None)
  Receive Date: 20090428
  Receipt Date: 20090420
  Transmission Date: 20091009
  Serious: Yes (Other)
  Sender: FDA-Public Use
  Company Number: US-ELI_LILLY_AND_COMPANY-US200904004725

PATIENT
  Sex: Female

DRUGS (5)
  1. EVISTA [Suspect]
     Indication: OSTEOPOROSIS
     Dosage: UNK, UNKNOWN
     Route: 065
     Dates: start: 19990101
  2. CALCIUM [Concomitant]
  3. VITAMIN D [Concomitant]
  4. COSAMIN DS [Concomitant]
  5. NEXIUM [Concomitant]

REACTIONS (4)
  - DYSPNOEA [None]
  - HIP ARTHROPLASTY [None]
  - HIP FRACTURE [None]
  - OSTEONECROSIS [None]
